FAERS Safety Report 22011106 (Version 1)
Quarter: 2023Q1

REPORT INFORMATION
  Report Type: Spontaneous
  Country: FR (occurrence: FR)
  Receive Date: 20230220
  Receipt Date: 20230220
  Transmission Date: 20230417
  Serious: Yes (Hospitalization)
  Sender: FDA-Public Use
  Company Number: FR-Atnahs Limited-ATNAHS20230200529

PATIENT
  Age: 82 Year
  Sex: Female
  Weight: 56.5 kg

DRUGS (4)
  1. VALIUM [Suspect]
     Active Substance: DIAZEPAM
     Indication: Product used for unknown indication
     Dosage: 440 MG
     Route: 050
     Dates: start: 20230130
  2. TOFRANIL [Suspect]
     Active Substance: IMIPRAMINE HYDROCHLORIDE
     Indication: Product used for unknown indication
     Dosage: 250 MG
     Route: 050
     Dates: start: 20230130
  3. TERALITHE [Suspect]
     Active Substance: LITHIUM CARBONATE
     Indication: Product used for unknown indication
     Route: 050
     Dates: start: 20230130
  4. LAMICTAL [Concomitant]
     Active Substance: LAMOTRIGINE
     Indication: Product used for unknown indication
     Route: 050
     Dates: start: 20230130

REACTIONS (2)
  - Poisoning deliberate [Unknown]
  - Coma [Unknown]

NARRATIVE: CASE EVENT DATE: 20230130
